FAERS Safety Report 8814160 (Version 1)
Quarter: 2012Q4

REPORT INFORMATION
  Report Type: Spontaneous
  Country: US (occurrence: None)
  Receive Date: 20120926
  Receipt Date: 20120926
  Transmission Date: 20130627
  Serious: No
  Sender: FDA-Public Use
  Company Number: None

PATIENT
  Age: 26 Year
  Sex: Female
  Weight: 79.83 kg

DRUGS (1)
  1. LAMOTRIGINE [Suspect]
     Indication: MOOD DISORDER NOS
     Dates: start: 20120802, end: 20120921

REACTIONS (4)
  - Drug ineffective [None]
  - Feeling abnormal [None]
  - Depression [None]
  - Irritability [None]
